FAERS Safety Report 9999279 (Version 2)
Quarter: 2015Q4

REPORT INFORMATION
  Report Type: Other
  Country: NO (occurrence: NO)
  Receive Date: 20140312
  Receipt Date: 20151013
  Transmission Date: 20160305
  Serious: Yes (Death, Hospitalization)
  Sender: FDA-Public Use
  Company Number: NO-ASTELLAS-2014EU002088

PATIENT
  Age: 98 Year
  Sex: Female

DRUGS (8)
  1. BETMIGA [Suspect]
     Active Substance: MIRABEGRON
     Route: 048
     Dates: start: 20131126, end: 20140226
  2. TRIOBE [Concomitant]
     Indication: PRODUCT USED FOR UNKNOWN INDICATION
     Dosage: UNK, UNKNOWN FREQ.
     Route: 048
     Dates: start: 2009
  3. AMLODIPINE [Concomitant]
     Active Substance: AMLODIPINE BESYLATE
     Indication: PRODUCT USED FOR UNKNOWN INDICATION
     Dosage: UNK, UNKNOWN FREQ.
     Route: 048
     Dates: end: 20140218
  4. FLUTIDE [Concomitant]
     Active Substance: FLUTICASONE PROPIONATE
     Indication: ASTHMA
     Dosage: 100 DF, ONCE DAILY (MICROGRAM/DOSE)
     Route: 055
     Dates: start: 2011
  5. ASASANTIN RETARD [Concomitant]
     Active Substance: ASPIRIN\DIPYRIDAMOLE
     Indication: PRODUCT USED FOR UNKNOWN INDICATION
     Dosage: UNK UNK, UNKNOWN FREQ.
     Route: 048
     Dates: end: 20140218
  6. BETMIGA [Suspect]
     Active Substance: MIRABEGRON
     Indication: URINARY INCONTINENCE
     Route: 065
     Dates: start: 201311
  7. MAGNESIUM LACTATE [Concomitant]
     Active Substance: MAGNESIUM LACTATE
     Indication: MUSCLE SPASMS
     Dosage: UNK UNK, UNKNOWN FREQ.
     Route: 048
     Dates: start: 2008
  8. SELOZOK [Concomitant]
     Active Substance: METOPROLOL SUCCINATE
     Indication: HYPERTENSION
     Route: 048
     Dates: start: 2009

REACTIONS (4)
  - Atrial fibrillation [Unknown]
  - Oedema [Not Recovered/Not Resolved]
  - Cardiac failure [Fatal]
  - Dyspnoea [Not Recovered/Not Resolved]

NARRATIVE: CASE EVENT DATE: 20140204
